FAERS Safety Report 10050458 (Version 3)
Quarter: 2014Q2

REPORT INFORMATION
  Report Type: Spontaneous
  Country: US (occurrence: US)
  Receive Date: 20140401
  Receipt Date: 20140407
  Transmission Date: 20141212
  Serious: Yes (Death, Hospitalization)
  Sender: FDA-Public Use
  Company Number: US-CELGENEUS-163-21880-14023552

PATIENT
  Sex: Female
  Weight: 61.22 kg

DRUGS (6)
  1. REVLIMID [Suspect]
     Indication: PLASMA CELL MYELOMA
     Route: 048
     Dates: start: 20130502, end: 20140228
  2. DEXAMETHASONE [Suspect]
     Indication: PLASMA CELL MYELOMA
     Route: 048
     Dates: start: 20130502, end: 20140228
  3. BLINDED MLN9708 [Suspect]
     Indication: PLASMA CELL MYELOMA
     Route: 048
     Dates: start: 20130502, end: 20140206
  4. HEPARIN [Concomitant]
     Indication: PROPHYLAXIS
     Route: 065
  5. COUMADIN [Concomitant]
     Indication: PRODUCT USED FOR UNKNOWN INDICATION
     Route: 065
  6. DIFLUCAN [Concomitant]
     Indication: PRODUCT USED FOR UNKNOWN INDICATION
     Route: 065

REACTIONS (2)
  - Neutropenia [Fatal]
  - Pneumonia fungal [Fatal]
